FAERS Safety Report 6496442-3 (Version None)
Quarter: 2009Q4

REPORT INFORMATION
  Report Type: 
  Country: None (occurrence: None)
  Receive Date: 20091210
  Receipt Date: 20091126
  Transmission Date: 20100525
  Serious: Yes (Hospitalization)
  Sender: FDA-Public Use
  Company Number: 2009AL001378

PATIENT
  Age: 62 Year
  Sex: Female

DRUGS (6)
  1. NAPROXEN [Suspect]
     Indication: ARTHRITIS
     Dosage: 500 MG;BID;PO
     Route: 048
     Dates: start: 20071114, end: 20090113
  2. DICLOFENAC SODIUM [Suspect]
     Indication: ARTHRITIS
     Dosage: 75 MG;BID;PO
     Route: 048
     Dates: start: 20070717, end: 20071105
  3. CANDESARTAN CILEXETIL [Concomitant]
  4. CLOPIDOGREL [Concomitant]
  5. ATENOLOL [Concomitant]
  6. ATORVASTATIN CALCIUM [Concomitant]

REACTIONS (3)
  - GASTRIC ULCER [None]
  - GASTROINTESTINAL HAEMORRHAGE [None]
  - HAEMOGLOBIN DECREASED [None]
